FAERS Safety Report 5554446-9 (Version None)
Quarter: 2007Q4

REPORT INFORMATION
  Report Type: 
  Country: None (occurrence: None)
  Receive Date: 20071130
  Receipt Date: 20070821
  Transmission Date: 20080405
  Serious: No
  Sender: FDA-Public Use
  Company Number: 2007PV030296

PATIENT
  Age: 61 Year
  Sex: Female

DRUGS (7)
  1. EXENATIDE(EXENATIDE) PEN,DISPOSABLE [Suspect]
     Indication: TYPE 2 DIABETES MELLITUS
     Dosage: 5 UG, 2/D, SUBCUTANEOUS ; 5 UG, EACH MORNING, SUBCUTANEOUS
     Route: 058
     Dates: start: 20061101
  2. EXENATIDE(EXENATIDE) PEN,DISPOSABLE [Suspect]
     Indication: TYPE 2 DIABETES MELLITUS
     Dosage: 5 UG, 2/D, SUBCUTANEOUS ; 5 UG, EACH MORNING, SUBCUTANEOUS
     Route: 058
     Dates: start: 20070401
  3. EXENATIDE(EXENATIDE) PEN,DISPOSABLE [Suspect]
     Dosage: 10 UG, EACH EVENING, SUBCUTANEOUS
     Route: 058
     Dates: start: 20070401
  4. PRECOSE [Concomitant]
  5. ACTOS [Concomitant]
  6. GLUCOTROL XL [Concomitant]
  7. GLUCOPHAGE [Concomitant]

REACTIONS (5)
  - ABDOMINAL DISTENSION [None]
  - BLOOD GLUCOSE INCREASED [None]
  - DECREASED APPETITE [None]
  - DRUG EFFECT DECREASED [None]
  - STOMACH DISCOMFORT [None]
